FAERS Safety Report 10018665 (Version 2)
Quarter: 2014Q2

REPORT INFORMATION
  Report Type: Spontaneous
  Country: US (occurrence: US)
  Receive Date: 20140318
  Receipt Date: 20140502
  Transmission Date: 20141212
  Serious: Yes (Hospitalization)
  Sender: FDA-Public Use
  Company Number: US-ACTELION-A-US2014-95992

PATIENT
  Age: 48 Year
  Sex: Female

DRUGS (3)
  1. OPSUMIT [Suspect]
     Indication: COR PULMONALE CHRONIC
     Dosage: 10 MG, UNK
     Route: 048
     Dates: start: 20140117
  2. ADCIRCA [Concomitant]
  3. TYVASO [Concomitant]

REACTIONS (5)
  - Somnolence [Unknown]
  - Fluid retention [Unknown]
  - Hypotension [Unknown]
  - Oedema [Unknown]
  - Fatigue [Unknown]
